FAERS Safety Report 13724479 (Version 3)
Quarter: 2017Q3

REPORT INFORMATION
  Report Type: Spontaneous
  Country: US (occurrence: US)
  Receive Date: 20170706
  Receipt Date: 20170724
  Transmission Date: 20171127
  Serious: Yes (Other)
  Sender: FDA-Public Use
  Company Number: US-PFIZER INC-2017285659

PATIENT
  Age: 65 Year
  Sex: Female
  Weight: 89.34 kg

DRUGS (5)
  1. XGEVA [Concomitant]
     Active Substance: DENOSUMAB
     Indication: BONE DISORDER
     Dosage: UNK
     Dates: end: 201705
  2. IBRANCE [Suspect]
     Active Substance: PALBOCICLIB
     Dosage: 100 MG, 1X/DAY
     Dates: start: 20160210
  3. LETROZOLE. [Suspect]
     Active Substance: LETROZOLE
     Indication: ANTIOESTROGEN THERAPY
     Dosage: 2.5 MG, 1X/DAY
     Dates: start: 20160210
  4. IBRANCE [Suspect]
     Active Substance: PALBOCICLIB
     Dosage: 75 MG, CYCLIC, (ONCE A DAY FOR 21 DAYS FOLLOWED BY 7 DAYS OFF)
     Dates: start: 20170710
  5. IBRANCE [Suspect]
     Active Substance: PALBOCICLIB
     Indication: BREAST CANCER METASTATIC
     Dosage: 125 MG, UNK

REACTIONS (15)
  - Onychoclasis [Unknown]
  - Haematocrit decreased [Unknown]
  - Dyspnoea [Unknown]
  - Inflammation [Unknown]
  - Heart rate increased [Unknown]
  - White blood cell count decreased [Not Recovered/Not Resolved]
  - Nail disorder [Unknown]
  - Organising pneumonia [Unknown]
  - Urinary tract infection [Unknown]
  - Pneumonia [Unknown]
  - Infection [Unknown]
  - Nail discolouration [Not Recovered/Not Resolved]
  - Radiation pneumonitis [Unknown]
  - Staphylococcal infection [Unknown]
  - Red blood cell count decreased [Unknown]

NARRATIVE: CASE EVENT DATE: 20170110
